FAERS Safety Report 5510904-4 (Version None)
Quarter: 2007Q4

REPORT INFORMATION
  Report Type: 
  Country: None (occurrence: None)
  Receive Date: 20071107
  Receipt Date: 20071022
  Transmission Date: 20080405
  Serious: Yes (Death, Hospitalization)
  Sender: FDA-Public Use
  Company Number: 020094

PATIENT
  Age: 73 Year
  Sex: Female

DRUGS (9)
  1. AMIODARONE HCL [Suspect]
     Dosage: 300 MG, BID,
  2. CYCLOPHOSPHAMIDE [Suspect]
     Indication: NON-HODGKIN'S LYMPHOMA
     Dosage: 750 MG/M2, ON DAY 1, INTRAVENOUS
     Route: 042
  3. RITUXIMAB                      (RITUXIMAB) [Concomitant]
  4. DOXORUBICIN HCL [Concomitant]
  5. VINCRISTINE [Concomitant]
  6. PREDNISONE [Concomitant]
  7. SIMVASTATIN [Concomitant]
  8. ATENOLOL [Concomitant]
  9. WARFARIN SODIUM [Concomitant]

REACTIONS (12)
  - ACUTE RESPIRATORY DISTRESS SYNDROME [None]
  - CARDIOPULMONARY FAILURE [None]
  - DEEP VEIN THROMBOSIS [None]
  - ENTEROCOCCAL INFECTION [None]
  - INTERSTITIAL LUNG DISEASE [None]
  - LUNG INFECTION PSEUDOMONAL [None]
  - MULTI-ORGAN FAILURE [None]
  - NON-HODGKIN'S LYMPHOMA [None]
  - PNEUMOMEDIASTINUM [None]
  - PNEUMOTHORAX [None]
  - PULMONARY TOXICITY [None]
  - SEPTIC SHOCK [None]
